FAERS Safety Report 4329968-9 (Version None)
Quarter: 2004Q1

REPORT INFORMATION
  Report Type: 
  Country: None (occurrence: None)
  Receive Date: 20040329
  Receipt Date: 20040302
  Transmission Date: 20041129
  Serious: Yes (Other)
  Sender: FDA-Public Use
  Company Number: S04-FRA-01308-01

PATIENT
  Age: 67 Year
  Sex: Male

DRUGS (7)
  1. EBIXA (MEMANTINE) [Suspect]
     Indication: DEMENTIA
     Dosage: 10 MG QD PO
     Route: 048
     Dates: start: 20021201, end: 20030215
  2. MOLSIDOMINE [Concomitant]
  3. ATENOLOL [Concomitant]
  4. RILMENIDINE [Concomitant]
  5. ASPIRIN [Concomitant]
  6. UROXATRAL [Concomitant]
  7. DONEPEZIL HYDROCHLORIDE [Concomitant]

REACTIONS (6)
  - ABNORMAL BEHAVIOUR [None]
  - CONDITION AGGRAVATED [None]
  - CREATININE RENAL CLEARANCE DECREASED [None]
  - HEADACHE [None]
  - HYPERTENSION [None]
  - VOMITING [None]
